FAERS Safety Report 10446696 (Version 2)
Quarter: 2014Q3

REPORT INFORMATION
  Report Type: Spontaneous
  Country: FR (occurrence: FR)
  Receive Date: 20140911
  Receipt Date: 20140911
  Transmission Date: 20150326
  Serious: Yes (Other)
  Sender: FDA-Public Use
  Company Number: FR-AMGEN-FRASP2014057859

PATIENT
  Age: 37 Year
  Sex: Female
  Weight: 42 kg

DRUGS (3)
  1. EUPANTOL [Concomitant]
     Active Substance: PANTOPRAZOLE SODIUM
     Dosage: 40 MG, 6 PER DAY
     Route: 048
  2. TOCO [Concomitant]
     Active Substance: UNSPECIFIED INGREDIENT
     Dosage: 500 UNK, QD
     Route: 048
  3. PROLIA [Suspect]
     Active Substance: DENOSUMAB
     Indication: OSTEOPOROTIC FRACTURE
     Dosage: UNK UNK, Q6MO
     Route: 058
     Dates: start: 201405

REACTIONS (7)
  - Myalgia [Not Recovered/Not Resolved]
  - Arthralgia [Not Recovered/Not Resolved]
  - Musculoskeletal pain [Not Recovered/Not Resolved]
  - Vitamin D abnormal [Unknown]
  - Hypocalcaemia [Recovered/Resolved]
  - Bone pain [Not Recovered/Not Resolved]
  - Pyrexia [Recovered/Resolved]

NARRATIVE: CASE EVENT DATE: 201405
